FAERS Safety Report 11062087 (Version 1)
Quarter: 2015Q2

REPORT INFORMATION
  Report Type: Spontaneous
  Country: US (occurrence: None)
  Receive Date: 20150423
  Receipt Date: 20150423
  Transmission Date: 20150821
  Serious: Yes (Hospitalization)
  Sender: FDA-Public Use
  Company Number: None

PATIENT
  Age: 78 Year
  Sex: Male
  Weight: 116 kg

DRUGS (7)
  1. OMPERAZOLE [Concomitant]
     Active Substance: OMEPRAZOLE
  2. FLUOXETINE [Concomitant]
     Active Substance: FLUOXETINE\FLUOXETINE HYDROCHLORIDE
  3. CLONIDINE. [Concomitant]
     Active Substance: CLONIDINE
  4. LISINOPRIL. [Concomitant]
     Active Substance: LISINOPRIL
  5. ONDANSETRON [Concomitant]
     Active Substance: ONDANSETRON
  6. SIMVASTIN [Concomitant]
     Active Substance: SIMVASTATIN
  7. INTRON A [Suspect]
     Active Substance: INTERFERON ALFA-2B
     Dosage: 15000000 UNIT
     Dates: start: 20130321, end: 20130527

REACTIONS (2)
  - Bradycardia [None]
  - Angina pectoris [None]

NARRATIVE: CASE EVENT DATE: 20130531
